FAERS Safety Report 7952500-5 (Version None)
Quarter: 2011Q4

REPORT INFORMATION
  Report Type: 
  Country: None (occurrence: None)
  Receive Date: 20111201
  Receipt Date: 20111128
  Transmission Date: 20120403
  Serious: Yes (Hospitalization, Other)
  Sender: FDA-Public Use
  Company Number: ES-PFIZER INC-2010081817

PATIENT
  Age: 34 Year
  Sex: Female
  Weight: 67.8 kg

DRUGS (9)
  1. DROSPIRENONE AND ETHINYL ESTRADIOL [Concomitant]
     Dosage: UNK
     Route: 048
  2. MIANSERIN [Concomitant]
     Dosage: 7.5 MG, 1X/DAY
     Route: 048
  3. LEVOTHYROXINE SODIUM [Concomitant]
     Indication: HYPOTHYROIDISM
     Dosage: 125 MG, 1X/DAY
     Route: 048
  4. ZIPRASIDONE HYDROCHLORIDE [Suspect]
     Dosage: 40 MG, 2X/DAY
     Route: 048
     Dates: end: 20100614
  5. DIAZEPAM [Concomitant]
     Dosage: 5 MG, UNK
     Route: 048
  6. ZIPRASIDONE HYDROCHLORIDE [Suspect]
     Dosage: 60 MG, 2X/DAY
     Route: 048
     Dates: start: 20100518, end: 20100501
  7. ZIPRASIDONE HYDROCHLORIDE [Suspect]
     Indication: SCHIZOPHRENIA
     Dosage: 140 MG/DAY (60 MG IN AM + 80 MG AT PM)
     Route: 048
     Dates: start: 20090623, end: 20100201
  8. ZIPRASIDONE HYDROCHLORIDE [Suspect]
     Dosage: 40 MG, UNK
     Dates: start: 20100525, end: 20100614
  9. LORAZEPAM [Concomitant]
     Dosage: 1 TABLET AT NIGHT

REACTIONS (4)
  - TOOTH INFECTION [None]
  - RASH ERYTHEMATOUS [None]
  - SEPTIC SHOCK [None]
  - DYSTONIA [None]
